FAERS Safety Report 12387912 (Version 4)
Quarter: 2017Q1

REPORT INFORMATION
  Report Type: Report from Study
  Country: DE (occurrence: DE)
  Receive Date: 20160520
  Receipt Date: 20170303
  Transmission Date: 20170428
  Serious: Yes (Hospitalization)
  Sender: FDA-Public Use
  Company Number: DE-ROCHE-1706604

PATIENT
  Age: 49 Year
  Sex: Female

DRUGS (18)
  1. CALCILAC (GERMANY) [Concomitant]
     Active Substance: CALCIUM CARBONATE\CHOLECALCIFEROL
  2. JURNISTA [Concomitant]
     Active Substance: HYDROMORPHONE HYDROCHLORIDE
  3. TOCILIZUMAB [Suspect]
     Active Substance: TOCILIZUMAB
     Route: 065
     Dates: start: 201308, end: 201403
  4. ETANERCEPT [Suspect]
     Active Substance: ETANERCEPT
     Indication: PRODUCT USED FOR UNKNOWN INDICATION
     Route: 065
  5. PANTOPRAZOL [Concomitant]
     Active Substance: PANTOPRAZOLE SODIUM
  6. BUDESONID [Concomitant]
     Active Substance: BUDESONIDE
  7. IBUPROFEN. [Concomitant]
     Active Substance: IBUPROFEN
  8. FOLIC ACID. [Concomitant]
     Active Substance: FOLIC ACID
  9. ALENDRONIC ACID [Concomitant]
     Active Substance: ALENDRONIC ACID
  10. VENLAFAXIN [Concomitant]
     Active Substance: VENLAFAXINE HYDROCHLORIDE
  11. TOCILIZUMAB [Suspect]
     Active Substance: TOCILIZUMAB
     Route: 065
     Dates: start: 201404
  12. RAMIPRIL. [Concomitant]
     Active Substance: RAMIPRIL
  13. BECLOMETASONE/FORMOTEROL [Concomitant]
  14. DEKRISTOL [Concomitant]
     Active Substance: CHOLECALCIFEROL
  15. TOCILIZUMAB [Suspect]
     Active Substance: TOCILIZUMAB
     Indication: RHEUMATOID ARTHRITIS
     Route: 065
     Dates: end: 20121204
  16. PREDNISOLON [Concomitant]
     Active Substance: PREDNISOLONE
  17. TOCILIZUMAB [Suspect]
     Active Substance: TOCILIZUMAB
     Route: 065
     Dates: start: 20150205, end: 20150917
  18. METHOTREXATE SODIUM. [Suspect]
     Active Substance: METHOTREXATE SODIUM
     Indication: RHEUMATOID ARTHRITIS
     Route: 065

REACTIONS (3)
  - Gastroenteritis [Unknown]
  - Bronchitis [Unknown]
  - Depression [Not Recovered/Not Resolved]

NARRATIVE: CASE EVENT DATE: 20150901
